FAERS Safety Report 7866024-7 (Version None)
Quarter: 2011Q4

REPORT INFORMATION
  Report Type: 
  Country: None (occurrence: None)
  Receive Date: 20111028
  Receipt Date: 20110408
  Transmission Date: 20120403
  Serious: No
  Sender: FDA-Public Use
  Company Number: US-GLAXOSMITHKLINE-A0922100A

PATIENT
  Age: 82 Year
  Sex: Female

DRUGS (8)
  1. NASONEX [Concomitant]
  2. VENTOLIN [Concomitant]
  3. MILK OF MAGNESIA TAB [Concomitant]
  4. WATER PILL [Concomitant]
  5. ADVAIR DISKUS 100/50 [Suspect]
     Indication: CHRONIC OBSTRUCTIVE PULMONARY DISEASE
     Route: 055
  6. SPIRIVA [Concomitant]
  7. GAS-X [Concomitant]
  8. ATROVENT [Concomitant]

REACTIONS (2)
  - DRUG INEFFECTIVE [None]
  - INCREASED UPPER AIRWAY SECRETION [None]
